FAERS Safety Report 4327914-5 (Version None)
Quarter: 2004Q1

REPORT INFORMATION
  Report Type: 
  Country: None (occurrence: None)
  Receive Date: 20040325
  Receipt Date: 20040311
  Transmission Date: 20041129
  Serious: Yes (Death)
  Sender: FDA-Public Use
  Company Number: 04-039

PATIENT
  Age: 45 Year
  Sex: Male

DRUGS (2)
  1. FOMEPIZOLE [Suspect]
     Indication: BLOOD METHANOL INCREASED
     Dosage: IV
     Route: 042
  2. 10% ETHANOL [Suspect]
     Indication: BLOOD METHANOL INCREASED
     Dosage: IV
     Route: 042

REACTIONS (4)
  - BLOOD METHANOL INCREASED [None]
  - BRAIN HERNIATION [None]
  - ELECTROENCEPHALOGRAM ABNORMAL [None]
  - HAEMODIALYSIS [None]
